FAERS Safety Report 8836736 (Version 1)
Quarter: 2012Q4

REPORT INFORMATION
  Report Type: 
  Country: IL (occurrence: IL)
  Receive Date: 20121012
  Receipt Date: 20121012
  Transmission Date: 20130627
  Serious: Yes (Hospitalization)
  Sender: FDA-Public Use
  Company Number: IL-TEVA-363432ISR

PATIENT
  Age: 28 Year
  Sex: Female

DRUGS (10)
  1. MORPHINE [Suspect]
     Indication: SPINAL ANAESTHESIA
     Dosage: preservative-free
  2. BUPIVACAINE [Interacting]
     Indication: SPINAL ANAESTHESIA
     Dosage: 0.5% hyperbaric, slow administration
     Route: 050
  3. KETAMINE [Interacting]
     Indication: RESTLESSNESS
     Dosage: 25mg in small intermittent doses during 1-h surgery
     Route: 042
  4. KETAMINE [Interacting]
     Indication: ABDOMINAL PAIN
     Dosage: 25mg in small intermittent doses during 1-h surgery
     Route: 042
  5. MIDAZOLAM [Interacting]
     Indication: RESTLESSNESS
     Dosage: 1mg in small intermittent doses during 1-h surgery
     Route: 042
  6. MIDAZOLAM [Interacting]
     Indication: ABDOMINAL PAIN
     Dosage: 1mg in small intermittent doses during 1-h surgery
     Route: 042
  7. PROPOFOL [Interacting]
     Indication: RESTLESSNESS
     Dosage: 100mg in small intermittent doses during 1-h surgery
     Route: 042
  8. PROPOFOL [Interacting]
     Indication: ABDOMINAL PAIN
     Dosage: 100mg in small intermittent doses during 1-h surgery
     Route: 042
  9. CEFAZOLIN [Concomitant]
     Indication: ANTIBIOTIC PROPHYLAXIS
     Dosage: 1g
     Route: 065
  10. OXYTOCIN [Concomitant]
     Dosage: 10U in 1000mL Ringer^s lactate
     Route: 065

REACTIONS (2)
  - Myoclonus [Recovering/Resolving]
  - Drug interaction [Recovering/Resolving]
